FAERS Safety Report 8397951-2 (Version None)
Quarter: 2012Q2

REPORT INFORMATION
  Report Type: 
  Country: None (occurrence: None)
  Receive Date: 20120531
  Receipt Date: 20120523
  Transmission Date: 20120825
  Serious: Yes (Hospitalization)
  Sender: FDA-Public Use
  Company Number: JP-PFIZER INC-2012128116

PATIENT
  Age: 85 Year
  Sex: Female

DRUGS (2)
  1. WARFARIN SODIUM [Interacting]
     Dosage: 1 MG, DAILY
     Route: 048
  2. ZOSYN [Suspect]
     Indication: PNEUMONIA
     Dosage: 4.5 MG, 3X/DAY
     Route: 041
     Dates: start: 20120513, end: 20120516

REACTIONS (2)
  - PROTHROMBIN TIME PROLONGED [None]
  - DRUG INTERACTION [None]
